FAERS Safety Report 10051546 (Version 7)
Quarter: 2015Q3

REPORT INFORMATION
  Report Type: Report from Study
  Country: US (occurrence: US)
  Receive Date: 20140401
  Receipt Date: 20150819
  Transmission Date: 20151125
  Serious: Yes (Hospitalization, Other)
  Sender: FDA-Public Use
  Company Number: US-ALEXION-A201400907

PATIENT

DRUGS (3)
  1. SOLIRIS [Suspect]
     Active Substance: ECULIZUMAB
     Indication: PAROXYSMAL NOCTURNAL HAEMOGLOBINURIA
     Dosage: 600 MG, QW
     Route: 042
     Dates: start: 20140303
  2. TRAMADOL. [Suspect]
     Active Substance: TRAMADOL
     Indication: HEADACHE
     Route: 065
  3. SOLIRIS [Suspect]
     Active Substance: ECULIZUMAB
     Dosage: 900 MG, Q2W
     Route: 042
     Dates: start: 20140331

REACTIONS (24)
  - Platelet count decreased [Unknown]
  - Haemoglobin abnormal [Unknown]
  - Headache [Unknown]
  - Drug ineffective [Unknown]
  - Hiccups [Unknown]
  - Aplastic anaemia [Unknown]
  - Blood lactate dehydrogenase abnormal [Unknown]
  - Decreased appetite [Unknown]
  - Haemoglobin decreased [Not Recovered/Not Resolved]
  - Haemoglobin decreased [Unknown]
  - Palpitations [Unknown]
  - Blood glucose abnormal [Unknown]
  - Asthenia [Unknown]
  - Joint swelling [Unknown]
  - Haemoglobin decreased [Unknown]
  - Dyspepsia [Unknown]
  - Platelet count decreased [Unknown]
  - Gingival bleeding [Unknown]
  - Depression [Unknown]
  - Headache [Unknown]
  - Rash [Unknown]
  - Platelet count abnormal [Unknown]
  - Visual impairment [Unknown]
  - Feeling drunk [Unknown]

NARRATIVE: CASE EVENT DATE: 20140311
